FAERS Safety Report 9752141 (Version 1)
Quarter: 2013Q4

REPORT INFORMATION
  Report Type: Spontaneous
  Country: US (occurrence: None)
  Receive Date: 20131212
  Receipt Date: 20131212
  Transmission Date: 20140711
  Serious: Yes (Death)
  Sender: FDA-Public Use
  Company Number: None

PATIENT
  Age: 77 Year
  Sex: Male
  Weight: 75 kg

DRUGS (4)
  1. ERBITUX [Suspect]
     Indication: COLORECTAL CANCER METASTATIC
     Route: 042
     Dates: start: 20131211, end: 20131211
  2. PRILOSEC [Concomitant]
  3. ONDANSETRON [Concomitant]
  4. COMPAZINE [Concomitant]

REACTIONS (1)
  - Cardio-respiratory arrest [None]
